FAERS Safety Report 4293721-5 (Version None)
Quarter: 2004Q1

REPORT INFORMATION
  Report Type: 
  Country: None (occurrence: None)
  Receive Date: 20040212
  Receipt Date: 20040211
  Transmission Date: 20041129
  Serious: Yes (Death, Hospitalization)
  Sender: FDA-Public Use
  Company Number: JP-GLAXOSMITHKLINE-A0497575A

PATIENT
  Age: 81 Year
  Sex: Male

DRUGS (10)
  1. NAVELBINE [Suspect]
     Indication: LUNG ADENOCARCINOMA
     Dosage: 25MG WEEKLY
     Route: 042
     Dates: start: 20030813, end: 20030820
  2. FOSFOMYCIN [Concomitant]
     Dates: start: 20030814, end: 20030816
  3. FOSFOMYCIN [Concomitant]
     Dates: start: 20030823, end: 20030823
  4. CEFOTIAM HYDROCHLORIDE [Concomitant]
     Dates: start: 20030824, end: 20030827
  5. FAMOTIDINE [Concomitant]
     Dates: start: 20030807, end: 20030826
  6. PREDNISOLONE [Concomitant]
     Dates: start: 20030807, end: 20030826
  7. FUROSEMIDE [Concomitant]
     Dates: start: 20030807, end: 20030826
  8. GLICLAZIDE [Concomitant]
     Dates: start: 20030807, end: 20030824
  9. HUMALOG [Concomitant]
     Dates: start: 20030814, end: 20030826
  10. LOXONIN [Concomitant]

REACTIONS (8)
  - ANAEMIA [None]
  - CARDIAC ARREST [None]
  - CARDIO-RESPIRATORY ARREST [None]
  - DYSPNOEA [None]
  - LEUKOPENIA [None]
  - MULTI-ORGAN FAILURE [None]
  - PYREXIA [None]
  - RESPIRATORY ARREST [None]
